FAERS Safety Report 12367409 (Version 2)
Quarter: 2019Q4

REPORT INFORMATION
  Report Type: Spontaneous
  Country: US (occurrence: US)
  Receive Date: 20160513
  Receipt Date: 20191211
  Transmission Date: 20200122
  Serious: Yes (Other)
  Sender: FDA-Public Use
  Company Number: US-UCBSA-2016017028

PATIENT
  Sex: Female

DRUGS (1)
  1. CIMZIA [Suspect]
     Active Substance: CERTOLIZUMAB PEGOL
     Indication: PRODUCT USED FOR UNKNOWN INDICATION
     Dosage: 200 MG, UNK
     Route: 058

REACTIONS (6)
  - Feeling hot [Unknown]
  - Urticaria [Unknown]
  - Dyspnoea [Unknown]
  - Pruritus [Unknown]
  - Flushing [Unknown]
  - Unresponsive to stimuli [Unknown]
